FAERS Safety Report 6266130-7 (Version None)
Quarter: 2009Q3

REPORT INFORMATION
  Report Type: 
  Country: None (occurrence: None)
  Receive Date: 20090713
  Receipt Date: 20090708
  Transmission Date: 20100115
  Serious: Yes (Death, Other)
  Sender: FDA-Public Use
  Company Number: JP-BRISTOL-MYERS SQUIBB COMPANY-14697585

PATIENT
  Age: 3 Decade
  Sex: Male

DRUGS (17)
  1. PARAPLATIN [Suspect]
     Indication: LANGERHANS' CELL GRANULOMATOSIS
     Route: 041
  2. HYDREA [Suspect]
     Indication: LANGERHANS' CELL GRANULOMATOSIS
     Dosage: 1 DOSAGEFORM = 500-3000 MG
     Route: 048
  3. CYCLOPHOSPHAMIDE [Suspect]
     Indication: LANGERHANS' CELL GRANULOMATOSIS
     Dosage: 6 COURSES
  4. ETOPOSIDE [Suspect]
     Indication: LANGERHANS' CELL GRANULOMATOSIS
     Dosage: 1 DOSAGEFORM = 25-200 MG
     Route: 065
  5. MITOXANTRONE [Suspect]
     Indication: LANGERHANS' CELL GRANULOMATOSIS
     Dosage: FORM = INJ 2 COURSES
     Route: 042
  6. PREDNISOLONE [Suspect]
     Indication: LANGERHANS' CELL GRANULOMATOSIS
     Dosage: 1 DOSAGEFORM = 30-60 MG
  7. INTERFERON ALPHA [Suspect]
     Indication: LANGERHANS' CELL GRANULOMATOSIS
     Dosage: FORM = INJ 1 DOSAGEFORM = 3M-10M IU
  8. CYCLOSPORINE [Suspect]
     Indication: LANGERHANS' CELL GRANULOMATOSIS
  9. VINBLASTINE [Suspect]
     Indication: LANGERHANS' CELL GRANULOMATOSIS
     Dosage: FORM = INJ 4 COURSES
     Route: 042
  10. SOBUZOXANE [Suspect]
     Indication: LANGERHANS' CELL GRANULOMATOSIS
     Dosage: FORM = GRAN 1 DOSAGEFORM = 1200-2000 MG
     Route: 048
  11. METHYLPREDNISOLONE [Suspect]
     Indication: LANGERHANS' CELL GRANULOMATOSIS
     Dosage: 7 COURSES
  12. METHOTREXATE SODIUM [Suspect]
     Indication: LANGERHANS' CELL GRANULOMATOSIS
  13. VINDESINE [Suspect]
     Indication: LANGERHANS' CELL GRANULOMATOSIS
     Dosage: 6 COURSES
  14. PINORUBIN [Suspect]
     Indication: LANGERHANS' CELL GRANULOMATOSIS
     Dosage: 6 COURSES
  15. RADIOTHERAPY [Suspect]
     Indication: LUNG NEOPLASM
     Dosage: 1 DOSAGEFORM = 136.8 GY
  16. RADIOTHERAPY [Suspect]
     Indication: OSTEOLYSIS
     Dosage: 1 DOSAGEFORM = 136.8 GY
  17. DEXAMETHASONE [Concomitant]
     Indication: LANGERHANS' CELL GRANULOMATOSIS

REACTIONS (3)
  - MALIGNANT FIBROUS HISTIOCYTOMA [None]
  - NEUTROPENIA [None]
  - PNEUMONIA [None]
